FAERS Safety Report 21243818 (Version 5)
Quarter: 2022Q3

REPORT INFORMATION
  Report Type: Report from Study
  Country: RU (occurrence: RU)
  Receive Date: 20220823
  Receipt Date: 20220916
  Transmission Date: 20221027
  Serious: Yes (Hospitalization)
  Sender: FDA-Public Use
  Company Number: RU-PFIZER INC-PV202200045392

PATIENT
  Age: 72 Year
  Sex: Female
  Weight: 88 kg

DRUGS (23)
  1. PALBOCICLIB [Suspect]
     Active Substance: PALBOCICLIB
     Indication: Breast cancer metastatic
     Dosage: 125 MG,1 IN 1 D
     Route: 048
     Dates: start: 20210617
  2. FULVESTRANT [Suspect]
     Active Substance: FULVESTRANT
     Indication: Breast cancer metastatic
     Dosage: 500 MG,1 IN 4 WK
     Route: 030
     Dates: start: 20210617
  3. INAVOLISIB [Suspect]
     Active Substance: INAVOLISIB
     Indication: Breast cancer metastatic
     Dosage: 9 MG,1 IN 1 D
     Route: 048
     Dates: start: 20210617
  4. INAVOLISIB [Suspect]
     Active Substance: INAVOLISIB
     Dosage: 9 MG,1 IN 1 D
     Route: 048
  5. METFORMIN [Concomitant]
     Active Substance: METFORMIN HYDROCHLORIDE
     Indication: Hyperglycaemia
     Dosage: 1000 MG,2 IN 1 D
     Route: 048
     Dates: start: 20210621
  6. LOSARTAN [Concomitant]
     Active Substance: LOSARTAN
     Indication: Hypertension
     Dosage: 50 MG,1 IN 1 D
     Route: 048
     Dates: start: 2019
  7. GLIMEPIRIDE [Concomitant]
     Active Substance: GLIMEPIRIDE
     Indication: Hyperglycaemia
     Dosage: 2 MG,2 IN 1 D
     Route: 048
     Dates: start: 20210624
  8. COPPER GLUCONATE/FERROUS GLUCONATE/MANGANESE GLUCONATE [Concomitant]
     Dosage: UNK
  9. SODIUM HYALURONATE [Concomitant]
     Active Substance: HYALURONATE SODIUM
     Dosage: 1 GTT,3 IN 1 D
     Route: 047
     Dates: start: 20211108
  10. ONDANSETRON [Concomitant]
     Active Substance: ONDANSETRON
     Dosage: 8 MG,1 IN 1 D
     Route: 042
     Dates: start: 20220810, end: 20220812
  11. DEXAMETHASONE [Concomitant]
     Active Substance: DEXAMETHASONE
     Dosage: 4 MG,1 IN 1 D
     Route: 042
     Dates: start: 20220810, end: 20220812
  12. SODIUM CHLORIDE [Concomitant]
     Active Substance: SODIUM CHLORIDE
     Dosage: 500 ML,1 IN 1 D
     Route: 042
     Dates: start: 20220810, end: 20220819
  13. HEPTRAL T [Concomitant]
     Dosage: 800 MG,2 IN 1 D
     Route: 042
     Dates: start: 20220810, end: 20220819
  14. ALBUMIN HUMAN [Concomitant]
     Active Substance: ALBUMIN HUMAN
     Dosage: 100 ML,1 IN 1 D
     Route: 042
     Dates: start: 20220810, end: 20220819
  15. URSODIOL [Concomitant]
     Active Substance: URSODIOL
     Dosage: 250 MG,3 IN 1 D
     Route: 048
     Dates: start: 20220811, end: 20220819
  16. ODESTON [Concomitant]
     Dosage: 2 CAPSULE (3 IN 1 D)
     Route: 048
     Dates: start: 20220811
  17. DUPHALAC [Concomitant]
     Active Substance: LACTULOSE
     Dosage: 20 ML,1 IN 1 D
     Route: 048
     Dates: start: 20220817
  18. RIFAXIMIN [Concomitant]
     Active Substance: RIFAXIMIN
     Dosage: 2 TABLET (2 IN 1 D)
     Route: 048
     Dates: start: 20220811, end: 20220816
  19. SPIRONOLACTONE [Concomitant]
     Active Substance: SPIRONOLACTONE
     Dosage: 50 MG,1 IN 1 D
     Route: 048
     Dates: start: 20220811, end: 20220816
  20. FUROSEMIDE [Concomitant]
     Active Substance: FUROSEMIDE
     Dosage: 20 MG,1 IN 1 D
     Route: 001
     Dates: start: 20220811, end: 20220816
  21. HEPA-MERZ [ORNITHINE ASPARTATE] [Concomitant]
     Dosage: 1 IU,3 IN 1 D
     Route: 048
     Dates: start: 20220811, end: 20220819
  22. FLUCONAZOLE [Concomitant]
     Active Substance: FLUCONAZOLE
     Dosage: 2000 MG,1 IN 1 D
     Route: 042
     Dates: start: 20220815, end: 20220816
  23. FLUCONAZOLE [Concomitant]
     Active Substance: FLUCONAZOLE
     Dosage: 400 MG,3 IN 1 D
     Route: 042
     Dates: start: 20220817, end: 20220819

REACTIONS (2)
  - Blood bilirubin increased [Recovered/Resolved]
  - Aspartate aminotransferase increased [Not Recovered/Not Resolved]

NARRATIVE: CASE EVENT DATE: 20220810
